FAERS Safety Report 6392121-1 (Version None)
Quarter: 2009Q4

REPORT INFORMATION
  Report Type: 
  Country: None (occurrence: None)
  Receive Date: 20091007
  Receipt Date: 20090928
  Transmission Date: 20100525
  Serious: Yes (Hospitalization)
  Sender: FDA-Public Use
  Company Number: JP-ASTRAZENECA-2009SE12554

PATIENT
  Age: 92 Year
  Sex: Female

DRUGS (8)
  1. SEROQUEL [Suspect]
     Indication: DEPRESSION
     Route: 048
  2. SEROQUEL [Suspect]
     Indication: SCHIZOPHRENIA
     Route: 048
  3. AMARYL [Suspect]
     Indication: DIABETES MELLITUS
  4. LASIX [Concomitant]
     Indication: CARDIAC FAILURE CHRONIC
  5. NORVASC [Concomitant]
     Indication: HYPERTENSION
  6. MAGNESIUM OXIDE [Concomitant]
     Indication: CONSTIPATION
  7. OMEPRAL [Concomitant]
     Indication: GASTRIC ULCER
  8. LENDORMIN [Concomitant]
     Indication: INSOMNIA

REACTIONS (1)
  - HYPOGLYCAEMIC COMA [None]
